FAERS Safety Report 5887546-4 (Version None)
Quarter: 2008Q3

REPORT INFORMATION
  Report Type: 
  Country: None (occurrence: None)
  Receive Date: 20080918
  Receipt Date: 20080910
  Transmission Date: 20090109
  Serious: Yes (Other)
  Sender: FDA-Public Use
  Company Number: PHHY2008IT07523

PATIENT
  Age: 69 Year
  Sex: Female

DRUGS (1)
  1. AREDIA [Suspect]
     Indication: MULTIPLE MYELOMA
     Dosage: 90 MG, QMO
     Dates: start: 20020301, end: 20040430

REACTIONS (5)
  - BONE LESION EXCISION [None]
  - BONE PAIN [None]
  - DEBRIDEMENT [None]
  - ORAL CAVITY FISTULA [None]
  - OSTEONECROSIS [None]
